FAERS Safety Report 7844285-8 (Version None)
Quarter: 2011Q4

REPORT INFORMATION
  Report Type: 
  Country: None (occurrence: None)
  Receive Date: 20111025
  Receipt Date: 20111013
  Transmission Date: 20120403
  Serious: Yes (Other)
  Sender: FDA-Public Use
  Company Number: BR-ELI_LILLY_AND_COMPANY-BR201110003419

PATIENT
  Sex: Female

DRUGS (5)
  1. OMEPRAZOLE [Concomitant]
     Dosage: UNK, UNKNOWN
     Route: 065
  2. ENALAPRIL MALEATE [Concomitant]
     Dosage: UNK, TID
     Route: 065
  3. HUMULIN N [Suspect]
     Indication: TYPE 2 DIABETES MELLITUS
     Dosage: UNK, BID
     Route: 058
     Dates: start: 20050101
  4. HUMULIN R [Suspect]
     Indication: TYPE 2 DIABETES MELLITUS
     Dosage: 8 IU, BID
     Route: 058
     Dates: start: 20050101
  5. LEVOTHYROXINE SODIUM [Concomitant]
     Dosage: 112 UG, UNKNOWN
     Route: 065

REACTIONS (6)
  - DRUG DOSE OMISSION [None]
  - INJECTION SITE HAEMATOMA [None]
  - MUSCLE CONTRACTIONS INVOLUNTARY [None]
  - BLOOD GLUCOSE FLUCTUATION [None]
  - INJECTION SITE HAEMORRHAGE [None]
  - HEPATITIS [None]
